FAERS Safety Report 18904742 (Version 1)
Quarter: 2021Q1

REPORT INFORMATION
  Report Type: Spontaneous
  Country: JP (occurrence: JP)
  Receive Date: 20210217
  Receipt Date: 20210217
  Transmission Date: 20210420
  Serious: Yes (Other)
  Sender: FDA-Public Use
  Company Number: JP-PFIZER INC-2021129713

PATIENT
  Sex: Male

DRUGS (1)
  1. SOLANAX [Suspect]
     Active Substance: ALPRAZOLAM
     Indication: DEPRESSION
     Dosage: 1 DF IN THE EVENING
     Route: 048

REACTIONS (3)
  - Depression [Unknown]
  - Motor neurone disease [Unknown]
  - Amyotrophic lateral sclerosis [Unknown]
